FAERS Safety Report 14175759 (Version 1)
Quarter: 2017Q4

REPORT INFORMATION
  Report Type: Spontaneous
  Country: US (occurrence: US)
  Receive Date: 20171109
  Receipt Date: 20171109
  Transmission Date: 20180321
  Serious: Yes (Other)
  Sender: FDA-Public Use
  Company Number: US-PFIZER INC-2017481827

PATIENT
  Age: 74 Year
  Sex: Male
  Weight: 117.93 kg

DRUGS (6)
  1. IBRANCE [Suspect]
     Active Substance: PALBOCICLIB
     Indication: NEOPLASM MALIGNANT
     Dosage: 125 MG ONCE DAILY FOR 21 DAYS THEN OFF 7 DAYS
     Dates: start: 201612
  2. WARFARIN [Concomitant]
     Active Substance: WARFARIN
     Indication: ATRIAL FIBRILLATION
     Dosage: 2MG TABLET ONCE DAILY FOR 3 DAYS, THEN 1MG TABLET ONCE DAILY FOR 4 DAYS
     Dates: start: 2012
  3. LOVASTATIN. [Concomitant]
     Active Substance: LOVASTATIN
     Indication: BLOOD CHOLESTEROL ABNORMAL
     Dosage: 20 MG, 1X/DAY
     Route: 048
     Dates: start: 2012
  4. ALLOPURINOL. [Concomitant]
     Active Substance: ALLOPURINOL
     Indication: GOUT
     Dosage: 300 MG, 1X/DAY
     Route: 048
  5. FASLODEX [Suspect]
     Active Substance: FULVESTRANT
     Dosage: 250 MG INJECTION IN EACH SIDE OF HIS REAR END EVERY 28 DAYS
  6. METOPROLOL. [Concomitant]
     Active Substance: METOPROLOL
     Indication: ATRIAL FIBRILLATION
     Dosage: 50 MG, 1X/DAY
     Route: 048
     Dates: start: 2013

REACTIONS (3)
  - Nasopharyngitis [Unknown]
  - Pneumonia [Recovering/Resolving]
  - Cough [Recovering/Resolving]

NARRATIVE: CASE EVENT DATE: 2017
